FAERS Safety Report 12603647 (Version 1)
Quarter: 2016Q3

REPORT INFORMATION
  Report Type: Spontaneous
  Country: US (occurrence: US)
  Receive Date: 20160728
  Receipt Date: 20160728
  Transmission Date: 20161109
  Serious: Yes (Hospitalization)
  Sender: FDA-Public Use
  Company Number: US-NAPPMUNDI-USA-2016-0132402

PATIENT
  Sex: Female

DRUGS (1)
  1. BUTRANS [Suspect]
     Active Substance: BUPRENORPHINE
     Indication: PRODUCT USED FOR UNKNOWN INDICATION
     Dosage: 15 MCG/HR, WEEKLY
     Route: 062
     Dates: start: 2014, end: 2016

REACTIONS (7)
  - Crying [Unknown]
  - Blood pressure decreased [Unknown]
  - Depressed mood [Unknown]
  - Cardiac failure [Unknown]
  - Suicidal ideation [Unknown]
  - Gallbladder operation [Unknown]
  - Pruritus [Unknown]

NARRATIVE: CASE EVENT DATE: 201607
